FAERS Safety Report 13883860 (Version 1)
Quarter: 2017Q3

REPORT INFORMATION
  Report Type: Spontaneous
  Country: US (occurrence: US)
  Receive Date: 20170820
  Receipt Date: 20170820
  Transmission Date: 20171127
  Serious: Yes (Disabling, Other)
  Sender: FDA-Public Use
  Company Number: None

PATIENT
  Age: 53 Year
  Sex: Male
  Weight: 103.5 kg

DRUGS (11)
  1. OXYCODONE [Concomitant]
     Active Substance: OXYCODONE
  2. OXYCODONE HCL 20MG [Suspect]
     Active Substance: OXYCODONE HYDROCHLORIDE
     Indication: SPINAL OPERATION
     Dosage: ?          QUANTITY:224 TABLET(S);?
     Route: 048
     Dates: start: 20170815, end: 20170820
  3. DIOVAN [Concomitant]
     Active Substance: VALSARTAN
  4. VITAMIN C X2 [Concomitant]
  5. OXYCODONE HCL 20MG [Suspect]
     Active Substance: OXYCODONE HYDROCHLORIDE
     Indication: PAIN
     Dosage: ?          QUANTITY:224 TABLET(S);?
     Route: 048
     Dates: start: 20170815, end: 20170820
  6. FLECTOR [Concomitant]
     Active Substance: DICLOFENAC EPOLAMINE
  7. SELAXIN [Concomitant]
  8. AXIRON [Concomitant]
     Active Substance: TESTOSTERONE
  9. MULTI VITAMIN X2 [Concomitant]
  10. VITAMIN D [Concomitant]
     Active Substance: CHOLECALCIFEROL
  11. FISH OIL [Concomitant]
     Active Substance: FISH OIL

REACTIONS (9)
  - Headache [None]
  - Influenza like illness [None]
  - Drug effect decreased [None]
  - Adverse drug reaction [None]
  - Nausea [None]
  - Product quality issue [None]
  - Malaise [None]
  - Abdominal discomfort [None]
  - Product substitution issue [None]

NARRATIVE: CASE EVENT DATE: 20170815
